FAERS Safety Report 5715188-X (Version None)
Quarter: 2008Q2

REPORT INFORMATION
  Report Type: 
  Country: None (occurrence: None)
  Receive Date: 20080423
  Receipt Date: 20080416
  Transmission Date: 20081010
  Serious: Yes (Other)
  Sender: FDA-Public Use
  Company Number: FR-PFIZER INC-2006114335

PATIENT
  Sex: Female
  Weight: 54 kg

DRUGS (5)
  1. SU-011,248 [Suspect]
     Indication: RENAL CELL CARCINOMA
     Route: 048
     Dates: start: 20051018, end: 20051227
  2. SU-011,248 [Suspect]
     Route: 048
  3. STOMATOLOGICALS, MOUTH PREPARATIONS [Concomitant]
  4. LOPERAMIDE HCL [Concomitant]
     Route: 048
     Dates: start: 20051021
  5. GAVISCON [Concomitant]
     Route: 048
     Dates: start: 20060731

REACTIONS (3)
  - CHOLESTASIS [None]
  - CYTOLYTIC HEPATITIS [None]
  - HYPOTHYROIDISM [None]
